FAERS Safety Report 10906517 (Version 1)
Quarter: 2015Q1

REPORT INFORMATION
  Report Type: Spontaneous
  Country: FR (occurrence: FR)
  Receive Date: 20150312
  Receipt Date: 20150312
  Transmission Date: 20150721
  Serious: Yes (Hospitalization)
  Sender: FDA-Public Use
  Company Number: FR-AUROBINDO-AUR-APL-2015-02018

PATIENT
  Age: 65 Year
  Sex: Female

DRUGS (6)
  1. MALOCIDE                           /00112501/ [Suspect]
     Active Substance: PYRIMETHAMINE
     Indication: CEREBRAL TOXOPLASMOSIS
     Dosage: UNK
     Route: 065
  2. FLUCONAZOLE ARROW [Suspect]
     Active Substance: FLUCONAZOLE
     Indication: ORAL CANDIDIASIS
     Dosage: 50 MG, DAILY
     Route: 048
     Dates: start: 20150120, end: 20150127
  3. VALACICLOVIR BLUEFISH [Suspect]
     Active Substance: VALACYCLOVIR HYDROCHLORIDE
     Indication: GENITAL HERPES
     Dosage: 500 MG, TWO TIMES A DAY
     Route: 048
     Dates: start: 20150115, end: 20150127
  4. DIAMICRON [Concomitant]
     Active Substance: GLICLAZIDE
     Indication: PRODUCT USED FOR UNKNOWN INDICATION
     Dosage: 1 DF, DAILY
     Route: 065
  5. ADIAZINE [Suspect]
     Active Substance: SULFADIAZINE
     Indication: CEREBRAL TOXOPLASMOSIS
     Dosage: 1500 MG, FOUR TIMES/DAY
     Route: 048
     Dates: start: 20150115, end: 20150127
  6. FOLIC ACID. [Concomitant]
     Active Substance: FOLIC ACID
     Indication: CEREBRAL TOXOPLASMOSIS
     Route: 065

REACTIONS (3)
  - Pruritus [Recovered/Resolved]
  - Erythema [Recovered/Resolved]
  - Rash macular [Recovered/Resolved]

NARRATIVE: CASE EVENT DATE: 20150126
